FAERS Safety Report 21293857 (Version 2)
Quarter: 2022Q3

REPORT INFORMATION
  Report Type: Spontaneous
  Country: AR (occurrence: AR)
  Receive Date: 20220905
  Receipt Date: 20220914
  Transmission Date: 20221027
  Serious: Yes (Other)
  Sender: FDA-Public Use
  Company Number: AR-PFIZER INC-PV202200055486

PATIENT
  Age: 68 Year
  Sex: Female

DRUGS (5)
  1. XELJANZ [Suspect]
     Active Substance: TOFACITINIB CITRATE
     Indication: Rheumatoid arthritis
     Dosage: 5 MG, 2X/DAY
     Dates: start: 2017
  2. XELJANZ [Suspect]
     Active Substance: TOFACITINIB CITRATE
     Dosage: 5 MG, 2X/DAY
     Dates: start: 2016
  3. METHOTREXATE [Concomitant]
     Active Substance: METHOTREXATE
  4. PREDNISONE [Concomitant]
     Active Substance: PREDNISONE
  5. FOLIC ACID [Concomitant]
     Active Substance: FOLIC ACID

REACTIONS (5)
  - Rheumatoid arthritis [Unknown]
  - Loss of personal independence in daily activities [Unknown]
  - Dysstasia [Unknown]
  - Gait disturbance [Unknown]
  - Osteoarthritis [Unknown]
